FAERS Safety Report 5688664-6 (Version None)
Quarter: 2008Q1

REPORT INFORMATION
  Report Type: 
  Country: None (occurrence: None)
  Receive Date: 20080331
  Receipt Date: 20080319
  Transmission Date: 20080703
  Serious: Yes (Hospitalization)
  Sender: FDA-Public Use
  Company Number: PHHO2008US04061

PATIENT
  Age: 64 Year
  Sex: Female
  Weight: 77.9 kg

DRUGS (1)
  1. ALDESLEUKIN [Suspect]
     Indication: METASTATIC RENAL CELL CARCINOMA
     Dosage: 50 IU EVERY 8 HOURS
     Route: 042
     Dates: start: 20080204

REACTIONS (7)
  - CLOSTRIDIUM DIFFICILE COLITIS [None]
  - GASTROINTESTINAL DISORDER [None]
  - ILEUS [None]
  - NAUSEA [None]
  - ORAL INTAKE REDUCED [None]
  - SMALL INTESTINAL OBSTRUCTION [None]
  - VOMITING [None]
